FAERS Safety Report 9549737 (Version 1)
Quarter: 2013Q3

REPORT INFORMATION
  Report Type: Spontaneous
  Country: US (occurrence: US)
  Receive Date: 20130924
  Receipt Date: 20130924
  Transmission Date: 20140515
  Serious: No
  Sender: FDA-Public Use
  Company Number: US-ALLERGAN-1311336US

PATIENT
  Age: 46 Year
  Sex: Female
  Weight: 95 kg

DRUGS (15)
  1. LUMIGAN 0.01% [Suspect]
     Indication: GLAUCOMA
     Dosage: 2 GTT, QHS
     Route: 047
  2. COMBIGAN[R] [Suspect]
     Indication: GLAUCOMA
     Dosage: 2 GTT, BID
     Route: 047
     Dates: start: 20130723
  3. PREDNISONE [Concomitant]
     Indication: DERMATITIS CONTACT
     Dosage: 150 MG, SINGLE
     Route: 030
     Dates: start: 201306, end: 201306
  4. PREDNISONE [Concomitant]
     Indication: DERMATITIS CONTACT
     Dosage: UNK
     Route: 048
     Dates: start: 201306
  5. SEROQUEL [Concomitant]
     Indication: PRODUCT USED FOR UNKNOWN INDICATION
     Dosage: 75 MG, QD
     Route: 048
     Dates: start: 201307
  6. SEROQUEL [Concomitant]
     Dosage: 150 MG, UNK
     Route: 048
     Dates: start: 201303
  7. TOPAMAX [Concomitant]
     Indication: PRODUCT USED FOR UNKNOWN INDICATION
     Dosage: 25 MG, QD
     Route: 048
  8. CYMBALTA [Concomitant]
     Indication: PRODUCT USED FOR UNKNOWN INDICATION
     Dosage: 60 MG, BID
     Route: 048
  9. VITAMIN D                          /00107901/ [Concomitant]
     Indication: PRODUCT USED FOR UNKNOWN INDICATION
     Dosage: UNK
     Dates: start: 201305
  10. MOTRIN [Concomitant]
     Indication: MULTIPLE FRACTURES
     Dosage: 800 MG, TID
     Route: 048
  11. VICODIN [Concomitant]
     Indication: MULTIPLE FRACTURES
     Dosage: 500 MG, TID
     Route: 048
     Dates: start: 201307
  12. AMBIEN [Concomitant]
     Indication: SLEEP DISORDER
     Dosage: 10 MG, QHS
     Route: 048
  13. MELATONIN [Concomitant]
     Indication: SLEEP DISORDER
     Dosage: 3 MG, QHS
     Route: 048
  14. GABAPENTIN [Concomitant]
     Indication: PRODUCT USED FOR UNKNOWN INDICATION
     Dosage: 600 MG, TID
     Route: 048
  15. CLONAZEPAM [Concomitant]
     Indication: PRODUCT USED FOR UNKNOWN INDICATION
     Dosage: 1 MG, PRN
     Route: 048

REACTIONS (12)
  - Rash pruritic [Unknown]
  - Blister [Unknown]
  - Skin ulcer [Unknown]
  - Skin ulcer [Unknown]
  - Skin ulcer [Unknown]
  - Skin ulcer [Unknown]
  - Skin ulcer [Unknown]
  - Skin ulcer [Unknown]
  - Skin ulcer [Unknown]
  - Ulcer [Unknown]
  - Ulcer [Unknown]
  - Skin hyperpigmentation [Unknown]
